FAERS Safety Report 23805814 (Version 1)
Quarter: 2024Q2

REPORT INFORMATION
  Report Type: Spontaneous
  Country: CA (occurrence: CA)
  Receive Date: 20240502
  Receipt Date: 20240502
  Transmission Date: 20240715
  Serious: Yes (Other)
  Sender: FDA-Public Use
  Company Number: CA-IGSA-BIG0028766

PATIENT
  Sex: Male

DRUGS (1)
  1. HUMAN IMMUNOGLOBULIN G [Suspect]
     Active Substance: HUMAN IMMUNOGLOBULIN G
     Indication: Product used for unknown indication
     Dosage: 20.0 GRAM, UNKNOWN
     Route: 042

REACTIONS (8)
  - Transfusion-related circulatory overload [Unknown]
  - Blood pressure increased [Unknown]
  - Heart rate increased [Unknown]
  - Transfusion-related acute lung injury [Unknown]
  - Dyspnoea [Unknown]
  - Hypoxia [Unknown]
  - Respiratory rate increased [Unknown]
  - Chills [Unknown]
